FAERS Safety Report 7319187-6 (Version None)
Quarter: 2011Q1

REPORT INFORMATION
  Report Type: 
  Country: None (occurrence: None)
  Receive Date: 20110223
  Receipt Date: 20110223
  Transmission Date: 20110831
  Serious: Yes (Other)
  Sender: FDA-Public Use
  Company Number: None

PATIENT
  Sex: Male
  Weight: 68.9467 kg

DRUGS (2)
  1. DIVALPROEX 250 GLOBAL [Suspect]
     Indication: MIGRAINE
     Dosage: 3 AT NIGHT
     Dates: start: 20100510, end: 20100630
  2. DIVALPROEX 250 GLOBAL [Suspect]
     Indication: MIGRAINE
     Dosage: 2 AT NIGHT

REACTIONS (1)
  - HYPOACUSIS [None]
